FAERS Safety Report 16305365 (Version 1)
Quarter: 2019Q2

REPORT INFORMATION
  Report Type: Spontaneous
  Country: JP (occurrence: JP)
  Receive Date: 20190513
  Receipt Date: 20190513
  Transmission Date: 20190711
  Serious: Yes (Hospitalization, Other)
  Sender: FDA-Public Use
  Company Number: JP-BAUSCH-BL-2019-013557

PATIENT
  Age: 75 Year
  Sex: Female

DRUGS (1)
  1. HYDROCORTISONE. [Suspect]
     Active Substance: HYDROCORTISONE
     Indication: SECONDARY ADRENOCORTICAL INSUFFICIENCY
     Dosage: SHE STARTED TAKING 25 MG DAILY AGAINST DOCTORS^ INSTRUCTIONS.
     Route: 065

REACTIONS (4)
  - Product use issue [Recovered/Resolved]
  - Hypercorticoidism [Recovered/Resolved]
  - Hypokalaemia [Unknown]
  - Condition aggravated [Recovered/Resolved]
